FAERS Safety Report 5770573-5 (Version None)
Quarter: 2008Q2

REPORT INFORMATION
  Report Type: 
  Country: None (occurrence: None)
  Receive Date: 20080613
  Receipt Date: 20080502
  Transmission Date: 20081010
  Serious: No
  Sender: FDA-Public Use
  Company Number: US-ABBOTT-08P-163-0450277-00

PATIENT

DRUGS (2)
  1. HUMIRA [Suspect]
     Indication: RHEUMATOID ARTHRITIS
     Dates: start: 20060101, end: 20071201
  2. HUMIRA [Suspect]
     Dates: start: 20071201

REACTIONS (2)
  - JOINT SWELLING [None]
  - RHEUMATOID ARTHRITIS [None]
